FAERS Safety Report 16749172 (Version 1)
Quarter: 2019Q3

REPORT INFORMATION
  Report Type: Spontaneous
  Country: US (occurrence: US)
  Receive Date: 20190828
  Receipt Date: 20190828
  Transmission Date: 20191005
  Serious: Yes (Other)
  Sender: FDA-Public Use
  Company Number: US-ALKEM LABORATORIES LIMITED-US-ALKEM-2019-07552

PATIENT

DRUGS (4)
  1. GABAPENTIN. [Suspect]
     Active Substance: GABAPENTIN
     Indication: SEIZURE
     Dosage: 5 MILLIGRAM/KILOGRAM, QD AT DISCHARGE WITHDRAWN
     Route: 065
  2. GABAPENTIN. [Suspect]
     Active Substance: GABAPENTIN
     Dosage: UNK, RE-INITIATION
     Route: 065
  3. GABAPENTIN. [Suspect]
     Active Substance: GABAPENTIN
     Indication: FEEDING INTOLERANCE
     Dosage: 5 MILLIGRAM/KILOGRAM, TID
     Route: 065
  4. LEVETIRACETAM. [Concomitant]
     Active Substance: LEVETIRACETAM
     Indication: PRODUCT USED FOR UNKNOWN INDICATION
     Dosage: UNK
     Route: 065

REACTIONS (4)
  - Neonatal tachycardia [Recovered/Resolved]
  - Vomiting [Recovered/Resolved]
  - Agitation neonatal [Recovered/Resolved]
  - Drug withdrawal syndrome neonatal [Unknown]
